FAERS Safety Report 23258818 (Version 1)
Quarter: 2023Q4

REPORT INFORMATION
  Report Type: Spontaneous
  Country: US (occurrence: None)
  Receive Date: 20231203
  Receipt Date: 20231203
  Transmission Date: 20240110
  Serious: Yes (Other)
  Sender: FDA-Public Use
  Company Number: None

PATIENT
  Age: 61 Year
  Sex: Male
  Weight: 87075 kg

DRUGS (8)
  1. WEGOVY [Suspect]
     Active Substance: SEMAGLUTIDE
     Indication: Weight decreased
     Dates: start: 20230415, end: 20230915
  2. XANAX [Concomitant]
     Active Substance: ALPRAZOLAM
  3. Blood Glucose Monitor [Concomitant]
  4. Oura Ring [Concomitant]
  5. Blood Pressure Monitor [Concomitant]
  6. wey supplement for protein intake [Concomitant]
  7. UNSPECIFIED INGREDIENT [Concomitant]
     Active Substance: UNSPECIFIED INGREDIENT
  8. fiber addatives [Concomitant]

REACTIONS (6)
  - Anxiety [None]
  - Panic attack [None]
  - Decreased appetite [None]
  - Gastrointestinal disorder [None]
  - Choking sensation [None]
  - Therapy cessation [None]

NARRATIVE: CASE EVENT DATE: 20230915
